FAERS Safety Report 25911814 (Version 2)
Quarter: 2025Q4

REPORT INFORMATION
  Report Type: Spontaneous
  Country: US (occurrence: US)
  Receive Date: 20251013
  Receipt Date: 20251022
  Transmission Date: 20260118
  Serious: Yes (Hospitalization)
  Sender: AUROBINDO
  Company Number: US-MLMSERVICE-20250924-PI656827-00057-1

PATIENT
  Age: 69 Year
  Sex: Female
  Weight: 47 kg

DRUGS (6)
  1. ATORVASTATIN [Interacting]
     Active Substance: ATORVASTATIN
     Indication: Coronary artery disease
     Dosage: 80 MILLIGRAM
     Route: 065
  2. COLCHICINE [Interacting]
     Active Substance: COLCHICINE
     Indication: Gout
     Dosage: 0.6 MILLIGRAM
     Route: 065
  3. ASPIRIN [Concomitant]
     Active Substance: ASPIRIN
     Indication: Product used for unknown indication
     Dosage: 81 MILLIGRAM, UNK
     Route: 065
  4. METHIMAZOLE [Concomitant]
     Active Substance: METHIMAZOLE
     Indication: Product used for unknown indication
     Dosage: 5 MILLIGRAM, UNK
     Route: 065
  5. METOPROLOL [Concomitant]
     Active Substance: METOPROLOL
     Indication: Product used for unknown indication
     Dosage: 100 MILLIGRAM
     Route: 065
  6. ALLOPURINOL [Concomitant]
     Active Substance: ALLOPURINOL
     Indication: Product used for unknown indication
     Dosage: 100 MILLIGRAM
     Route: 065

REACTIONS (8)
  - Dysphagia [Recovered/Resolved]
  - Diarrhoea [Recovered/Resolved]
  - Malnutrition [Recovered/Resolved]
  - Muscle atrophy [Recovered/Resolved]
  - Abnormal loss of weight [Recovered/Resolved]
  - Drug interaction [Recovered/Resolved]
  - Gastrointestinal mucosal disorder [Recovered/Resolved]
  - Toxicity to various agents [Unknown]
